FAERS Safety Report 23895911 (Version 2)
Quarter: 2024Q3

REPORT INFORMATION
  Report Type: Report from Study
  Country: US (occurrence: None)
  Receive Date: 20240524
  Receipt Date: 20240710
  Transmission Date: 20241016
  Serious: Yes (Other)
  Sender: ASTRAZENECA
  Company Number: 2024A118080

PATIENT
  Age: 19756 Day
  Sex: Female

DRUGS (1)
  1. FASENRA [Suspect]
     Active Substance: BENRALIZUMAB
     Route: 058

REACTIONS (4)
  - Ligament rupture [Unknown]
  - Foot deformity [Unknown]
  - Exostosis [Unknown]
  - Inappropriate schedule of product administration [Unknown]
